FAERS Safety Report 7029444-9 (Version None)
Quarter: 2010Q3

REPORT INFORMATION
  Report Type: 
  Country: None (occurrence: None)
  Receive Date: 20100930
  Receipt Date: 20100917
  Transmission Date: 20110219
  Serious: Yes (Death, Disabling, Other)
  Sender: FDA-Public Use
  Company Number: 698891

PATIENT
  Age: 46 Year
  Sex: Female

DRUGS (22)
  1. LEUCOVORIN CALCIUM FOR INJECTION (MAYNE) (CALCIUM FOLINATE) [Suspect]
     Indication: COLORECTAL CANCER METASTATIC
     Dates: start: 20090527, end: 20090101
  2. LEUCOVORIN CALCIUM FOR INJECTION (MAYNE) (CALCIUM FOLINATE) [Suspect]
     Indication: COLORECTAL CANCER METASTATIC
     Dates: start: 20090128, end: 20090513
  3. LEUCOVORIN CALCIUM FOR INJECTION (MAYNE) (CALCIUM FOLINATE) [Suspect]
     Indication: COLORECTAL CANCER METASTATIC
     Dates: start: 20100127
  4. IRINOTECAN HCL [Suspect]
     Indication: COLORECTAL CANCER
     Dates: start: 20100101
  5. IRINOTECAN HCL [Suspect]
     Indication: COLORECTAL CANCER
     Dates: start: 20100505
  6. ELOXATIN [Suspect]
     Indication: COLORECTAL CANCER
     Dosage: INTRAVENOUS
     Route: 042
     Dates: start: 20070101, end: 20070101
  7. ELOXATIN [Suspect]
     Indication: COLORECTAL CANCER
     Dosage: INTRAVENOUS
     Route: 042
     Dates: start: 20070701, end: 20070701
  8. ELOXATIN [Suspect]
     Indication: COLORECTAL CANCER
     Dosage: INTRAVENOUS
     Route: 042
     Dates: start: 20080513, end: 20080513
  9. ELOXATIN [Suspect]
     Indication: COLORECTAL CANCER
     Dosage: INTRAVENOUS
     Route: 042
     Dates: start: 20080601, end: 20080601
  10. ELOXATIN [Suspect]
     Indication: COLORECTAL CANCER
     Dosage: INTRAVENOUS
     Route: 042
     Dates: start: 20081218, end: 20081218
  11. ELOXATIN [Suspect]
     Indication: COLORECTAL CANCER
     Dosage: INTRAVENOUS
     Route: 042
     Dates: start: 20100101
  12. ELOXATIN [Suspect]
     Indication: COLORECTAL CANCER
     Dosage: INTRAVENOUS
     Route: 042
     Dates: start: 20100501
  13. AVASTIN [Suspect]
     Indication: COLORECTAL CANCER
     Dosage: 20 MG, UNKNOWN (UNKNOWN); INTRAVENOUS, 20 MG, UNKNOWN (UNKNOWN), 20 MG, UNKNOWN (UNKNOWN); INTRAVENO
     Route: 042
     Dates: start: 20070801, end: 20090101
  14. AVASTIN [Suspect]
     Indication: COLORECTAL CANCER
     Dosage: 20 MG, UNKNOWN (UNKNOWN); INTRAVENOUS, 20 MG, UNKNOWN (UNKNOWN), 20 MG, UNKNOWN (UNKNOWN); INTRAVENO
     Route: 042
     Dates: start: 20070601
  15. AVASTIN [Suspect]
     Indication: COLORECTAL CANCER
     Dosage: 20 MG, UNKNOWN (UNKNOWN); INTRAVENOUS, 20 MG, UNKNOWN (UNKNOWN), 20 MG, UNKNOWN (UNKNOWN); INTRAVENO
     Route: 042
     Dates: start: 20100101
  16. FLUOROURACIL [Suspect]
     Indication: COLORECTAL CANCER
     Dates: start: 20080128, end: 20090901
  17. FLUOROURACIL [Suspect]
     Indication: COLORECTAL CANCER
     Dates: start: 20100101
  18. XELODA [Suspect]
     Indication: COLORECTAL CANCER
     Dosage: TWO 500-MG TABLETS, UNKNOWN (UNKNOWN)
     Dates: start: 20081218, end: 20090107
  19. XELODA [Suspect]
     Indication: COLORECTAL CANCER
     Dosage: TWO 500-MG TABLETS, UNKNOWN (UNKNOWN)
     Dates: start: 20090128, end: 20090513
  20. XELODA [Suspect]
     Indication: COLORECTAL CANCER
     Dosage: TWO 500-MG TABLETS, UNKNOWN (UNKNOWN)
     Dates: start: 20100501
  21. ZOFRAN [Concomitant]
  22. DEXAMETHASONE [Concomitant]

REACTIONS (33)
  - ABASIA [None]
  - ABDOMINAL DISTENSION [None]
  - ABDOMINAL PAIN UPPER [None]
  - ACTIVITIES OF DAILY LIVING IMPAIRED [None]
  - APHAGIA [None]
  - ARTHROPATHY [None]
  - ASCITES [None]
  - BACK PAIN [None]
  - DECREASED APPETITE [None]
  - DRUG HYPERSENSITIVITY [None]
  - DRUG TOLERANCE DECREASED [None]
  - DRUG TOXICITY [None]
  - DRY SKIN [None]
  - EPISTAXIS [None]
  - ERYTHEMA [None]
  - FATIGUE [None]
  - FEELING ABNORMAL [None]
  - FLANK PAIN [None]
  - LUNG DISORDER [None]
  - MALIGNANT NEOPLASM PROGRESSION [None]
  - METASTASES TO SPINE [None]
  - MUSCLE SPASMS [None]
  - NEPHROLITHIASIS [None]
  - NEUROPATHY PERIPHERAL [None]
  - OEDEMA PERIPHERAL [None]
  - PAIN IN JAW [None]
  - SKIN EXFOLIATION [None]
  - SKIN IRRITATION [None]
  - STOMATITIS [None]
  - TREMOR [None]
  - VOMITING [None]
  - WEIGHT DECREASED [None]
  - WOUND DEHISCENCE [None]
